FAERS Safety Report 8392670-0 (Version None)
Quarter: 2012Q2

REPORT INFORMATION
  Report Type: 
  Country: None (occurrence: None)
  Receive Date: 20120529
  Receipt Date: 20120524
  Transmission Date: 20120825
  Serious: Yes (Death, Other)
  Sender: FDA-Public Use
  Company Number: US-ASTRAZENECA-2012SE33469

PATIENT
  Age: 48 Year
  Sex: Male

DRUGS (2)
  1. SEROQUEL [Suspect]
     Indication: NEGATIVE THOUGHTS
     Route: 048
  2. CELEXA [Concomitant]

REACTIONS (3)
  - OFF LABEL USE [None]
  - COMPLETED SUICIDE [None]
  - PHYSICAL ASSAULT [None]
